FAERS Safety Report 17224194 (Version 1)
Quarter: 2020Q1

REPORT INFORMATION
  Report Type: Spontaneous
  Country: FR (occurrence: FR)
  Receive Date: 20200102
  Receipt Date: 20200102
  Transmission Date: 20200409
  Serious: Yes (Hospitalization, Other)
  Sender: FDA-Public Use
  Company Number: FR-PFIZER INC-2019561840

PATIENT
  Age: 76 Year
  Sex: Male

DRUGS (4)
  1. RAMIPRIL. [Suspect]
     Active Substance: RAMIPRIL
     Dosage: 10 MG, 1X/DAY
     Route: 048
     Dates: end: 20141118
  2. ESIDREX [Suspect]
     Active Substance: HYDROCHLOROTHIAZIDE
     Dosage: 0.5 DF, 1X/DAY
     Route: 048
     Dates: end: 20141118
  3. LASILIX [FUROSEMIDE] [Suspect]
     Active Substance: FUROSEMIDE
     Dosage: 60 MG, 1X/DAY
     Route: 048
     Dates: start: 20141110, end: 20141118
  4. COUMADIN [Suspect]
     Active Substance: WARFARIN SODIUM
     Indication: ATRIAL FIBRILLATION
     Dosage: UNK
     Route: 048
     Dates: start: 20141110, end: 20141118

REACTIONS (2)
  - Overdose [Unknown]
  - Prerenal failure [Not Recovered/Not Resolved]

NARRATIVE: CASE EVENT DATE: 20141118
